FAERS Safety Report 6109052-4 (Version None)
Quarter: 2009Q1

REPORT INFORMATION
  Report Type: 
  Country: None (occurrence: None)
  Receive Date: 20090310
  Receipt Date: 20090226
  Transmission Date: 20090719
  Serious: Yes (Death, Hospitalization)
  Sender: FDA-Public Use
  Company Number: VE-BAYER-200912885LA

PATIENT
  Age: 47 Year
  Sex: Male

DRUGS (4)
  1. NEXAVAR [Suspect]
     Indication: RENAL CANCER STAGE IV
     Dosage: UNIT DOSE: 400 MG
     Route: 048
     Dates: start: 20081201, end: 20090201
  2. NEXAVAR [Suspect]
     Route: 048
     Dates: start: 20090202, end: 20090201
  3. TRAMADOL HCL [Concomitant]
     Indication: ANALGESIC THERAPY
     Route: 048
  4. OMEPRAZOLE [Concomitant]
     Indication: GASTRITIS
     Route: 048

REACTIONS (7)
  - BLISTER [None]
  - DEHYDRATION [None]
  - DERMATITIS [None]
  - HAEMATOCHEZIA [None]
  - MUCOSAL INFLAMMATION [None]
  - PALMAR-PLANTAR ERYTHRODYSAESTHESIA SYNDROME [None]
  - SKIN DISCOLOURATION [None]
